FAERS Safety Report 7361642-7 (Version None)
Quarter: 2011Q1

REPORT INFORMATION
  Report Type: 
  Country: None (occurrence: None)
  Receive Date: 20110318
  Receipt Date: 20110308
  Transmission Date: 20110831
  Serious: Yes (Hospitalization)
  Sender: FDA-Public Use
  Company Number: US-JNJFOC-20100201781

PATIENT
  Sex: Male
  Weight: 29 kg

DRUGS (12)
  1. MESALAMINE [Concomitant]
     Route: 048
  2. MESALAMINE [Concomitant]
     Route: 048
  3. PROTONIX [Concomitant]
  4. METRONIDAZOLE [Concomitant]
  5. ANTIBIOTIC [Concomitant]
  6. BUDESONIDE [Concomitant]
  7. REMICADE [Suspect]
     Dosage: TOTAL 3 DOSES RECEIVED THUS FAR
     Route: 042
  8. REMICADE [Suspect]
     Indication: COLITIS ULCERATIVE
     Route: 042
  9. REMICADE [Suspect]
     Dosage: TOTAL 2 DOSES RECEIVED THUS FAR
     Route: 042
  10. PREDNISONE [Concomitant]
     Route: 048
  11. PREDNISONE [Concomitant]
     Route: 048
  12. ANTIBIOTIC [Concomitant]

REACTIONS (3)
  - COLITIS ULCERATIVE [None]
  - ENTEROBACTER BACTERAEMIA [None]
  - FUNGAEMIA [None]
